FAERS Safety Report 4718294-1 (Version None)
Quarter: 2005Q3

REPORT INFORMATION
  Report Type: 
  Country: None (occurrence: None)
  Receive Date: 20050718
  Receipt Date: 20050718
  Transmission Date: 20060218
  Serious: Yes (Other)
  Sender: FDA-Public Use
  Company Number: None

PATIENT
  Age: 34 Year
  Sex: Female
  Weight: 77.1115 kg

DRUGS (2)
  1. ZOLOFT [Suspect]
     Indication: ANXIETY
     Dosage: 2 TABLETS    ONCE DAILY  ORAL
     Route: 048
     Dates: start: 20050428, end: 20050716
  2. ZOLOFT [Suspect]
     Indication: PANIC DISORDER
     Dosage: 2 TABLETS    ONCE DAILY  ORAL
     Route: 048
     Dates: start: 20050428, end: 20050716

REACTIONS (5)
  - AGITATION [None]
  - ANXIETY [None]
  - INSOMNIA [None]
  - PANIC ATTACK [None]
  - SUICIDAL IDEATION [None]
